FAERS Safety Report 21248694 (Version 2)
Quarter: 2022Q3

REPORT INFORMATION
  Report Type: Spontaneous
  Country: US (occurrence: US)
  Receive Date: 20220824
  Receipt Date: 20220827
  Transmission Date: 20221027
  Serious: No
  Sender: FDA-Public Use
  Company Number: US-drreddys-SPO/USA/22/0153480

PATIENT
  Age: 53 Year
  Sex: Female

DRUGS (1)
  1. ZENATANE [Suspect]
     Active Substance: ISOTRETINOIN
     Indication: Product used for unknown indication
     Dosage: RMA ISSUE DATE: 10 MAY 2022 03:33:16 PM, 10 JUNE 2022 02:00:14 PM, 07 JULY 2022 09:18:51 AM

REACTIONS (2)
  - Abdominal discomfort [Unknown]
  - Nausea [Unknown]
